FAERS Safety Report 18130230 (Version 2)
Quarter: 2020Q3

REPORT INFORMATION
  Report Type: Report from Study
  Country: CO (occurrence: CO)
  Receive Date: 20200810
  Receipt Date: 20200922
  Transmission Date: 20201103
  Serious: Yes (Other)
  Sender: FDA-Public Use
  Company Number: NVSC2020CO220942

PATIENT
  Sex: Male
  Weight: 91 kg

DRUGS (4)
  1. VOTRIENT [Suspect]
     Active Substance: PAZOPANIB HYDROCHLORIDE
     Indication: METASTATIC RENAL CELL CARCINOMA
     Dosage: 800 MG, QD
     Route: 048
     Dates: start: 201905, end: 202007
  2. DOCETAXEL. [Concomitant]
     Active Substance: DOCETAXEL
     Indication: RENAL CELL CARCINOMA
     Dosage: EVERY 15 DAYS
     Route: 042
     Dates: start: 202008
  3. TRANSFER FACTOR [Concomitant]
     Indication: IMMUNE SYSTEM DISORDER
     Dosage: 6 DF, QD
     Route: 048
  4. DACARBAZINE. [Concomitant]
     Active Substance: DACARBAZINE
     Indication: RENAL CELL CARCINOMA
     Dosage: EVERY 15 DAYS
     Route: 042
     Dates: start: 202008

REACTIONS (3)
  - Drug ineffective [Unknown]
  - Pulmonary mass [Unknown]
  - Myalgia [Unknown]
